FAERS Safety Report 18514415 (Version 2)
Quarter: 2020Q4

REPORT INFORMATION
  Report Type: Spontaneous
  Country: BR (occurrence: BR)
  Receive Date: 20201118
  Receipt Date: 20201202
  Transmission Date: 20210114
  Serious: Yes (Hospitalization)
  Sender: FDA-Public Use
  Company Number: BR-B.I. PHARMACEUTICALS,INC./RIDGEFIELD-2020-BI-061176

PATIENT
  Age: 72 Year
  Sex: Female
  Weight: 48 kg

DRUGS (4)
  1. ALENIA [ESOMEPRAZOLE MAGNESIUM] [Concomitant]
     Active Substance: ESOMEPRAZOLE MAGNESIUM
     Indication: CHRONIC OBSTRUCTIVE PULMONARY DISEASE
     Dosage: DAILY DOSAGE WAS NOT REPORTED BY THE PATIENT
     Route: 048
  2. SPIRIVA RESPIMAT [Suspect]
     Active Substance: TIOTROPIUM BROMIDE
     Indication: CHRONIC OBSTRUCTIVE PULMONARY DISEASE
     Dosage: 2 PUFFS PER DAY
     Route: 048
  3. MALEATO DE ENALAPRIL [Concomitant]
     Indication: HYPERTENSION
     Dosage: DAILY DOSAGE WAS NOT REPORTED BY THE PATIENT
     Route: 048
  4. BESILAPIN [Concomitant]
     Indication: HYPERTENSION
     Dosage: DAILY DOSAGE WAS NOT REPORTED BY THE PATIENT
     Route: 048

REACTIONS (3)
  - Pneumonia [Unknown]
  - Fatigue [Not Recovered/Not Resolved]
  - Dyspnoea [Not Recovered/Not Resolved]

NARRATIVE: CASE EVENT DATE: 20201111
